FAERS Safety Report 10102753 (Version 2)
Quarter: 2014Q2

REPORT INFORMATION
  Report Type: Other
  Country: US (occurrence: US)
  Receive Date: 20140424
  Receipt Date: 20140630
  Transmission Date: 20141212
  Serious: Yes (Hospitalization, Other)
  Sender: FDA-Public Use
  Company Number: US-GSKPPD-2014GSK000419

PATIENT
  Age: 45 Year
  Sex: Female
  Weight: 170.7 kg

DRUGS (6)
  1. AVANDIA [Suspect]
     Indication: DIABETES MELLITUS
     Route: 048
     Dates: start: 2005, end: 2007
  2. ZOCOR [Concomitant]
  3. ENALAPRIL [Concomitant]
  4. TOPROL [Concomitant]
  5. LIPITOR [Concomitant]
  6. PLAVIX [Concomitant]
     Dosage: TREATMENT MEDICATION

REACTIONS (1)
  - Myocardial infarction [Recovered/Resolved]
